FAERS Safety Report 8330241-2 (Version None)
Quarter: 2012Q2

REPORT INFORMATION
  Report Type: 
  Country: None (occurrence: None)
  Receive Date: 20120430
  Receipt Date: 20120420
  Transmission Date: 20120825
  Serious: Yes (Hospitalization)
  Sender: FDA-Public Use
  Company Number: 2012SP021226

PATIENT
  Age: 83 Year
  Sex: Female

DRUGS (21)
  1. SORIATANE [Suspect]
     Indication: PSORIASIS
     Dosage: 30 MG;QD
     Dates: start: 20120101, end: 20120216
  2. ALLOPURINOL [Suspect]
     Indication: HYPERURICAEMIA
     Dosage: 100 MG;QD;PO
     Route: 048
     Dates: start: 20120211, end: 20120213
  3. ALLOPURINOL [Suspect]
     Indication: GOUT
     Dosage: 100 MG;QD;PO
     Route: 048
     Dates: start: 20120211, end: 20120213
  4. LASIX [Concomitant]
  5. RAMIPRIL [Concomitant]
  6. VITABACT [Concomitant]
  7. AMYCOR (AMYCOR /01609101/) [Suspect]
     Indication: PRODUCT USED FOR UNKNOWN INDICATION
     Dosage: CUT
     Route: 003
     Dates: end: 20120212
  8. LEVOTHYROXINE SODIUM [Concomitant]
  9. SILVER SULFADIAZINE [Concomitant]
  10. DIPROSONE [Suspect]
     Indication: PRODUCT USED FOR UNKNOWN INDICATION
     Dosage: CUT
     Route: 003
     Dates: end: 20120221
  11. POTASSIUM CHLORIDE [Concomitant]
  12. NITROGLYCERIN [Concomitant]
  13. HYPERIUM [Concomitant]
  14. COLCHICINE [Concomitant]
  15. ACETAMINOPHEN [Concomitant]
  16. VITAMIN C [Concomitant]
  17. LOCOID [Concomitant]
  18. ECONAZOLE NITRATE [Suspect]
     Indication: PRODUCT USED FOR UNKNOWN INDICATION
     Dosage: CUT
     Route: 003
     Dates: end: 20120221
  19. BISOPROLOL FUMARATE [Concomitant]
  20. FERROUS FUMARATE [Concomitant]
  21. PANTOPRAZOLE SODIUM [Concomitant]

REACTIONS (7)
  - INTERTRIGO [None]
  - RASH PRURITIC [None]
  - RASH ERYTHEMATOUS [None]
  - SKIN PLAQUE [None]
  - CONJUNCTIVITIS [None]
  - SKIN ULCER [None]
  - CHEILITIS [None]
